FAERS Safety Report 16408143 (Version 2)
Quarter: 2019Q2

REPORT INFORMATION
  Report Type: Spontaneous
  Country: CN (occurrence: CN)
  Receive Date: 20190610
  Receipt Date: 20190612
  Transmission Date: 20190711
  Serious: Yes (Hospitalization, Other)
  Sender: FDA-Public Use
  Company Number: CN-TERSERA THERAPEUTICS LLC-2019TRS000910

PATIENT

DRUGS (2)
  1. CASODEX [Suspect]
     Active Substance: BICALUTAMIDE
     Indication: PROSTATE CANCER
     Dosage: 50 MG
     Route: 048
     Dates: start: 20190328, end: 20190428
  2. ZOLADEX [Suspect]
     Active Substance: GOSERELIN ACETATE
     Indication: PROSTATE CANCER
     Dosage: 3.6 MG
     Route: 058
     Dates: start: 20190401, end: 20190428

REACTIONS (4)
  - Anaphylactic reaction [Unknown]
  - Swelling [Unknown]
  - Generalised erythema [Unknown]
  - Rash generalised [Not Recovered/Not Resolved]
